APPROVED DRUG PRODUCT: PENICILLAMINE
Active Ingredient: PENICILLAMINE
Strength: 250MG
Dosage Form/Route: CAPSULE;ORAL
Application: A211735 | Product #001 | TE Code: AB
Applicant: GRANULES PHARMACEUTICALS INC
Approved: Dec 2, 2020 | RLD: No | RS: No | Type: RX